FAERS Safety Report 20612751 (Version 1)
Quarter: 2022Q1

REPORT INFORMATION
  Report Type: Other
  Country: US (occurrence: None)
  Receive Date: 20220318
  Receipt Date: 20220318
  Transmission Date: 20220423
  Serious: Yes (Other)
  Sender: FDA-Public Use
  Company Number: US-ROCHE-2860803

PATIENT
  Sex: Female

DRUGS (13)
  1. ACTEMRA [Suspect]
     Active Substance: TOCILIZUMAB
     Indication: Rheumatoid arthritis
     Route: 058
  2. ACTEMRA [Suspect]
     Active Substance: TOCILIZUMAB
  3. ACTEMRA [Suspect]
     Active Substance: TOCILIZUMAB
     Indication: Conversion disorder
  4. ACTEMRA [Suspect]
     Active Substance: TOCILIZUMAB
  5. ACTEMRA [Suspect]
     Active Substance: TOCILIZUMAB
     Indication: Osteoarthritis
  6. ACTEMRA [Suspect]
     Active Substance: TOCILIZUMAB
  7. ACTEMRA [Suspect]
     Active Substance: TOCILIZUMAB
     Indication: Sleep apnoea syndrome
  8. ACTEMRA [Suspect]
     Active Substance: TOCILIZUMAB
  9. ACTEMRA [Suspect]
     Active Substance: TOCILIZUMAB
     Indication: Seizure
  10. ACTEMRA [Suspect]
     Active Substance: TOCILIZUMAB
  11. CARBAMAZEPINE [Concomitant]
     Active Substance: CARBAMAZEPINE
  12. TALWIN [Concomitant]
     Active Substance: PENTAZOCINE LACTATE
  13. TEQUIN [Concomitant]
     Active Substance: GATIFLOXACIN

REACTIONS (3)
  - Thrombosis [Unknown]
  - Nasopharyngitis [Unknown]
  - Cough [Unknown]
